FAERS Safety Report 5914956-9 (Version None)
Quarter: 2008Q4

REPORT INFORMATION
  Report Type: 
  Country: None (occurrence: None)
  Receive Date: 20081008
  Receipt Date: 20081001
  Transmission Date: 20090506
  Serious: Yes (Hospitalization)
  Sender: FDA-Public Use
  Company Number: 2008BI021132

PATIENT
  Age: 64 Year
  Sex: Female

DRUGS (16)
  1. AVONEX [Suspect]
     Indication: MULTIPLE SCLEROSIS
     Dosage: 30 UG; QW; IM
     Route: 030
     Dates: start: 20050708
  2. CARDIZEM [Concomitant]
  3. IMDUR [Concomitant]
  4. THEO-DUR [Concomitant]
  5. BACLOFEN [Concomitant]
  6. ELAVIL [Concomitant]
  7. NEXIUM [Concomitant]
  8. ADVAIR DISKUS 100/50 [Concomitant]
  9. SPIRIVA [Concomitant]
  10. CHRONIC MEDICINES NOS [Concomitant]
  11. NORVASC [Concomitant]
  12. NITROGLYCERIN [Concomitant]
  13. FOSAMAX [Concomitant]
  14. AMITRIPTYLINE HCL [Concomitant]
  15. PREMARIN [Concomitant]
  16. THYROID TAB [Concomitant]

REACTIONS (23)
  - ANGINA PECTORIS [None]
  - ARTHRITIS [None]
  - BLOOD GLUCOSE INCREASED [None]
  - CARDIAC MURMUR [None]
  - CARDIAC PROCEDURE COMPLICATION [None]
  - CORONARY ARTERY OCCLUSION [None]
  - CORONARY ARTERY STENOSIS [None]
  - DRUG INTOLERANCE [None]
  - ELECTROCARDIOGRAM ST SEGMENT ELEVATION [None]
  - GALLOP RHYTHM PRESENT [None]
  - GASTRITIS [None]
  - HYPOKALAEMIA [None]
  - HYPOXIA [None]
  - INFUSION SITE IRRITATION [None]
  - INFUSION SITE PRURITUS [None]
  - KYPHOSIS [None]
  - LOBAR PNEUMONIA [None]
  - NAUSEA [None]
  - OEDEMA PERIPHERAL [None]
  - PEDAL PULSE DECREASED [None]
  - RESPIRATORY TRACT INFECTION [None]
  - SINUS TACHYCARDIA [None]
  - WHITE BLOOD CELL COUNT INCREASED [None]
